FAERS Safety Report 10532444 (Version 1)
Quarter: 2014Q4

REPORT INFORMATION
  Report Type: Spontaneous
  Country: GB (occurrence: GB)
  Receive Date: 20141021
  Receipt Date: 20141021
  Transmission Date: 20150529
  Serious: Yes (Hospitalization)
  Sender: FDA-Public Use
  Company Number: GB-TAKEDA-2014TUS010294

PATIENT
  Age: 84 Year
  Sex: Female
  Weight: 66 kg

DRUGS (1)
  1. ADENURIC [Suspect]
     Active Substance: FEBUXOSTAT
     Indication: GOUT
     Dosage: 80 MG, QD
     Route: 048

REACTIONS (1)
  - Jaundice cholestatic [Unknown]
